FAERS Safety Report 6547118-5 (Version None)
Quarter: 2010Q1

REPORT INFORMATION
  Report Type: 
  Country: None (occurrence: None)
  Receive Date: 20100122
  Receipt Date: 20100115
  Transmission Date: 20100710
  Serious: Yes (Hospitalization, Other)
  Sender: FDA-Public Use
  Company Number: US-ELI_LILLY_AND_COMPANY-US201001003282

PATIENT
  Sex: Female

DRUGS (9)
  1. HUMALOG [Suspect]
     Dosage: 6 U, EACH MORNING
     Dates: start: 20091101
  2. HUMALOG [Suspect]
     Dosage: 6 U, EACH EVENING
  3. HUMALOG [Suspect]
     Dosage: UNK, AS NEEDED
  4. HUMALOG [Suspect]
     Dosage: 6 U, EACH MORNING
  5. HUMALOG [Suspect]
     Dosage: 6 U, EACH EVENING
  6. HUMALOG [Suspect]
     Dosage: UNK, AS NEEDED
  7. HUMULIN N [Suspect]
     Dosage: 30 U, EACH MORNING
  8. HUMULIN N [Suspect]
     Dosage: 25 U, EACH EVENING
  9. LANTUS [Concomitant]
     Dosage: UNK, UNK
     Dates: start: 20091101

REACTIONS (14)
  - BACK PAIN [None]
  - BLOOD GLUCOSE DECREASED [None]
  - BLOOD GLUCOSE INCREASED [None]
  - BLOOD PRESSURE INCREASED [None]
  - CATARACT [None]
  - EYE HAEMORRHAGE [None]
  - FAECALOMA [None]
  - HYPOGLYCAEMIC SEIZURE [None]
  - MALAISE [None]
  - NERVE INJURY [None]
  - PAIN IN EXTREMITY [None]
  - PHOTOPHOBIA [None]
  - RETINAL DETACHMENT [None]
  - VISION BLURRED [None]
